FAERS Safety Report 21792629 (Version 1)
Quarter: 2022Q4

REPORT INFORMATION
  Report Type: Spontaneous
  Country: ES (occurrence: ES)
  Receive Date: 20221229
  Receipt Date: 20221229
  Transmission Date: 20230113
  Serious: Yes (Hospitalization, Other)
  Sender: FDA-Public Use
  Company Number: ES-ASTELLAS-2022US044876

PATIENT
  Age: 54 Year
  Sex: Female

DRUGS (8)
  1. TACROLIMUS [Suspect]
     Active Substance: TACROLIMUS
     Indication: Product used for unknown indication
     Dosage: UNK UNK, UNKNOWN FREQ
  2. AVASTIN [Suspect]
     Active Substance: BEVACIZUMAB
     Indication: Product used for unknown indication
     Dosage: UNK UNK, UNKNOWN FREQ
     Dates: start: 202207, end: 202211
  3. METHYLPREDNISOLONE [Concomitant]
     Active Substance: METHYLPREDNISOLONE
     Indication: Product used for unknown indication
     Dosage: 3 G, UNKNOWN FREQ
  4. CELLCEPT [Concomitant]
     Active Substance: MYCOPHENOLATE MOFETIL
     Indication: Product used for unknown indication
     Dosage: UNK UNK, UNKNOWN FREQ
  5. CAPECITABINE\OXALIPLATIN [Concomitant]
     Active Substance: CAPECITABINE\OXALIPLATIN
     Indication: Product used for unknown indication
     Dosage: UNK UNK, UNKNOWN FREQ
  6. THYMOCYTE IMMUNE GLOBULIN NOS [Concomitant]
     Active Substance: THYMOCYTE IMMUNE GLOBULIN NOS
     Indication: Product used for unknown indication
     Dosage: UNK UNK, UNKNOWN FREQ
  7. PREDNISONE [Concomitant]
     Active Substance: PREDNISONE
     Indication: Product used for unknown indication
     Dosage: 2.5 MILLIGRAM, QD
  8. FLUOROURACIL\IRINOTECAN\LEUCOVORIN [Concomitant]
     Active Substance: FLUOROURACIL\IRINOTECAN\LEUCOVORIN
     Indication: Product used for unknown indication
     Dosage: UNK UNK, UNKNOWN FREQ

REACTIONS (18)
  - Transplant rejection [Unknown]
  - Hydronephrosis [Unknown]
  - Acute kidney injury [Unknown]
  - Pyelonephritis [Unknown]
  - Bladder cancer [Unknown]
  - Transitional cell carcinoma [Unknown]
  - Adenocarcinoma [Unknown]
  - Neurotoxicity [Unknown]
  - Pyrexia [Unknown]
  - Diarrhoea [Unknown]
  - Proteinuria [Unknown]
  - Haematuria [Unknown]
  - Asthenia [Unknown]
  - Anaemia [Unknown]
  - Nausea [Unknown]
  - Venous thrombosis [Unknown]
  - Rash [Unknown]
  - Off label use [Unknown]

NARRATIVE: CASE EVENT DATE: 20080101
